FAERS Safety Report 9722689 (Version 1)
Quarter: 2013Q3

REPORT INFORMATION
  Report Type: Spontaneous
  Country: US (occurrence: None)
  Receive Date: 20130701
  Receipt Date: 20130701
  Transmission Date: 20140515
  Serious: Yes (Hospitalization)
  Sender: FDA-Public Use
  Company Number: 39146

PATIENT
  Age: 56 Year
  Sex: Female
  Weight: 30 kg

DRUGS (14)
  1. GLASSIA [Suspect]
     Indication: ALPHA-1 ANTI-TRYPSIN DEFICIENCY
     Route: 042
     Dates: start: 20120704
  2. SYMBICORT [Concomitant]
  3. SPIRIVA [Concomitant]
  4. MULTIVITAMIN [Concomitant]
  5. VENTOLIN [Concomitant]
  6. EPI-PEN [Concomitant]
  7. PAROVEN FORTE [Concomitant]
  8. RESTORIL [Concomitant]
  9. MARINOL [Concomitant]
  10. AMITRIPTYLINE [Concomitant]
  11. FIORINAL #3 PRN PAIN [Concomitant]
  12. FLONASE [Concomitant]
  13. VITAMIN C [Concomitant]
  14. OXYGEN [Concomitant]

REACTIONS (5)
  - Pneumonia [None]
  - Weight decreased [None]
  - Drug dose omission [None]
  - Bacterial test positive [None]
  - Weight fluctuation [None]
